FAERS Safety Report 8339038-0 (Version None)
Quarter: 2012Q2

REPORT INFORMATION
  Report Type: 
  Country: None (occurrence: None)
  Receive Date: 20120507
  Receipt Date: 20120426
  Transmission Date: 20120825
  Serious: Yes (Other)
  Sender: FDA-Public Use
  Company Number: JP-VERTEX PHARMACEUTICALS INC.-AE-2012-006220

PATIENT
  Age: 67 Year
  Sex: Female

DRUGS (11)
  1. TELAVIC (TELAPREVIR) [Suspect]
     Indication: HEPATITIS C
     Route: 048
     Dates: start: 20120308, end: 20120403
  2. TELAVIC (TELAPREVIR) [Suspect]
     Route: 048
     Dates: start: 20120404
  3. MAIBASTAN [Concomitant]
     Route: 048
  4. REBETOL [Concomitant]
     Route: 048
     Dates: start: 20120328, end: 20120403
  5. VOLTAREN [Concomitant]
     Route: 048
     Dates: start: 20120308
  6. PEGINTERFERON ALFA-2B [Concomitant]
     Route: 051
     Dates: start: 20120308
  7. GASTROM [Concomitant]
     Route: 048
     Dates: start: 20120321
  8. ALLOPURINOL [Concomitant]
     Route: 048
     Dates: start: 20120404
  9. REBETOL [Concomitant]
     Indication: HEPATITIS C
     Route: 048
     Dates: start: 20120308, end: 20120327
  10. REBETOL [Concomitant]
     Route: 048
     Dates: start: 20120404
  11. MAGMITT [Concomitant]
     Route: 048
     Dates: start: 20120315

REACTIONS (2)
  - BLOOD CREATININE INCREASED [None]
  - ANAEMIA [None]
